FAERS Safety Report 8715799 (Version 2)
Quarter: 2013Q3

REPORT INFORMATION
  Report Type: Spontaneous
  Country: DE (occurrence: None)
  Receive Date: 20120725
  Receipt Date: 20130910
  Transmission Date: 20140515
  Serious: Yes (Hospitalization)
  Sender: FDA-Public Use
  Company Number: ACO_31100_2012

PATIENT
  Age: 43 Year
  Sex: Male

DRUGS (3)
  1. AMPYRA [Suspect]
     Indication: MULTIPLE SCLEROSIS
     Dosage: 10 MG, BID, ORAL
     Route: 048
     Dates: start: 20120417
  2. BETAFERON [Concomitant]
  3. CANDESARTAN CILEXETIL [Concomitant]

REACTIONS (2)
  - Fall [None]
  - Upper limb fracture [None]
